FAERS Safety Report 7387078-0 (Version None)
Quarter: 2011Q1

REPORT INFORMATION
  Report Type: 
  Country: None (occurrence: None)
  Receive Date: 20110331
  Receipt Date: 20110322
  Transmission Date: 20110831
  Serious: Yes (Disabling, Other)
  Sender: FDA-Public Use
  Company Number: US-MERCK-1005USA02719

PATIENT
  Age: 55 Year
  Sex: Female
  Weight: 63 kg

DRUGS (4)
  1. FOSAMAX PLUS D [Suspect]
     Route: 048
     Dates: start: 20070401
  2. PREMPRO [Concomitant]
     Indication: MENOPAUSAL SYMPTOMS
     Route: 065
     Dates: start: 20010713, end: 20021017
  3. FOSAMAX [Suspect]
     Indication: OSTEOPENIA
     Route: 048
     Dates: start: 20020524, end: 20080501
  4. DRISDOL [Concomitant]
     Indication: VITAMIN SUPPLEMENTATION
     Route: 065
     Dates: start: 20020524, end: 20020601

REACTIONS (32)
  - ANKLE FRACTURE [None]
  - BREAST DISORDER [None]
  - INSOMNIA [None]
  - ORAL PAIN [None]
  - HOT FLUSH [None]
  - FISTULA DISCHARGE [None]
  - HYPERTENSION [None]
  - OEDEMA MOUTH [None]
  - JAW DISORDER [None]
  - TOOTH DISORDER [None]
  - BRONCHITIS [None]
  - OSTEONECROSIS OF JAW [None]
  - ABSCESS [None]
  - TOOTH EXTRACTION [None]
  - BACTERIAL INFECTION [None]
  - MUSCLE DISORDER [None]
  - IMPAIRED HEALING [None]
  - GINGIVAL INFECTION [None]
  - DECREASED APPETITE [None]
  - COUGH [None]
  - TRISMUS [None]
  - VITAMIN B COMPLEX DEFICIENCY [None]
  - TIBIA FRACTURE [None]
  - ADVERSE DRUG REACTION [None]
  - DENTAL CARIES [None]
  - FISTULA [None]
  - FUNGAL INFECTION [None]
  - GINGIVITIS [None]
  - NASAL DISORDER [None]
  - UTERINE ATROPHY [None]
  - UPPER RESPIRATORY TRACT INFECTION [None]
  - ORAL INFECTION [None]
